FAERS Safety Report 10052163 (Version 1)
Quarter: 2014Q2

REPORT INFORMATION
  Report Type: Spontaneous
  Country: FR (occurrence: FR)
  Receive Date: 20140402
  Receipt Date: 20140402
  Transmission Date: 20141212
  Serious: Yes (Hospitalization)
  Sender: FDA-Public Use
  Company Number: FR-009507513-1403FRA012815

PATIENT
  Age: 65 Year
  Sex: Male

DRUGS (3)
  1. EMEND [Suspect]
     Dosage: UNK
     Route: 048
     Dates: start: 20130910, end: 20130910
  2. GEMCITABINE HOSPIRA [Suspect]
     Indication: LUNG NEOPLASM MALIGNANT
     Dosage: 1600 MG, UNK
     Dates: start: 20130910, end: 20130910
  3. CISPLATIN MYLAN [Suspect]
     Indication: LUNG NEOPLASM MALIGNANT
     Dosage: 127 MG, UNK
     Dates: start: 20130903, end: 20130903

REACTIONS (1)
  - Thrombocytopenia [Recovered/Resolved]
